FAERS Safety Report 5414817-8 (Version None)
Quarter: 2007Q3

REPORT INFORMATION
  Report Type: 
  Country: None (occurrence: None)
  Receive Date: 20070815
  Receipt Date: 20070803
  Transmission Date: 20080115
  Serious: Yes (Life-Threatening, Other)
  Sender: FDA-Public Use
  Company Number: DK-JNJFOC-20040502352

PATIENT
  Sex: Female
  Weight: 66 kg

DRUGS (14)
  1. ABCIXIMAB [Suspect]
     Route: 042
  2. ABCIXIMAB [Suspect]
     Indication: ACUTE MYOCARDIAL INFARCTION
     Route: 042
  3. PLACEBO [Suspect]
     Indication: ACUTE MYOCARDIAL INFARCTION
     Route: 042
  4. PLACEBO [Suspect]
     Route: 042
  5. ABCIXIMAB [Suspect]
     Route: 042
  6. ABCIXIMAB [Suspect]
     Route: 042
  7. MAGNYL [Concomitant]
     Indication: MYOCARDIAL INFARCTION
  8. PLAVIX [Concomitant]
     Indication: MYOCARDIAL INFARCTION
  9. PREDNISON [Concomitant]
  10. LANSOPRAZOLE [Concomitant]
     Indication: GASTRITIS
  11. SIMVASTATIN [Concomitant]
     Indication: HYPERCHOLESTEROLAEMIA
  12. DIMITONE [Concomitant]
  13. FURIX [Concomitant]
  14. KALEORID [Concomitant]

REACTIONS (3)
  - GASTROINTESTINAL HAEMORRHAGE [None]
  - MYOCARDIAL RUPTURE [None]
  - PERICARDIAL HAEMORRHAGE [None]
